FAERS Safety Report 5227132-2 (Version None)
Quarter: 2007Q1

REPORT INFORMATION
  Report Type: 
  Country: None (occurrence: None)
  Receive Date: 20070201
  Receipt Date: 20070201
  Transmission Date: 20070707
  Serious: Yes (Hospitalization)
  Sender: FDA-Public Use
  Company Number: None

PATIENT
  Sex: Male
  Weight: 81.1939 kg

DRUGS (1)
  1. AVASTIN [Suspect]
     Indication: HEPATIC NEOPLASM MALIGNANT
     Dosage: 5 MG/M2 Q3 WEEKS IV DRIP
     Route: 041
     Dates: start: 20050716, end: 20061221

REACTIONS (1)
  - OESOPHAGEAL VARICES HAEMORRHAGE [None]
